FAERS Safety Report 9276037 (Version 1)
Quarter: 2013Q2

REPORT INFORMATION
  Report Type: Spontaneous
  Country: SE (occurrence: SE)
  Receive Date: 20130507
  Receipt Date: 20130507
  Transmission Date: 20140414
  Serious: Yes (Other)
  Sender: FDA-Public Use
  Company Number: SE-INCYTE CORPORATION-2013IN000913

PATIENT
  Sex: 0

DRUGS (1)
  1. JAKAVI [Suspect]
     Dosage: UNK UNK, UNK
     Route: 065

REACTIONS (2)
  - Pharyngeal haemorrhage [Unknown]
  - Varices oesophageal [Unknown]
